FAERS Safety Report 20507611 (Version 5)
Quarter: 2022Q2

REPORT INFORMATION
  Report Type: Report from Study
  Country: US (occurrence: US)
  Receive Date: 20220223
  Receipt Date: 20220414
  Transmission Date: 20220721
  Serious: No
  Sender: FDA-Public Use
  Company Number: US-NOVARTISTESTPH-NVSC2022US041170

PATIENT
  Age: 50 Year
  Sex: Female

DRUGS (4)
  1. MAYZENT [Suspect]
     Active Substance: SIPONIMOD
     Indication: Relapsing multiple sclerosis
     Dosage: 2 MG, QD
     Route: 048
     Dates: start: 20220219
  2. MAYZENT [Suspect]
     Active Substance: SIPONIMOD
     Dosage: 2 MG, QD
     Route: 048
     Dates: start: 20220220
  3. MAYZENT [Suspect]
     Active Substance: SIPONIMOD
     Dosage: 2 MG, QD (ONCE DAILY)
     Route: 065
     Dates: start: 202202, end: 20220314
  4. VITAMIN D NOS [Concomitant]
     Active Substance: VITAMIN D NOS
     Indication: Product used for unknown indication
     Route: 065

REACTIONS (6)
  - Heart rate decreased [Not Recovered/Not Resolved]
  - Blood pressure increased [Unknown]
  - Ocular discomfort [Unknown]
  - Inappropriate schedule of product administration [Unknown]
  - Visual acuity reduced [Unknown]
  - Vision blurred [Unknown]

NARRATIVE: CASE EVENT DATE: 20220220
